FAERS Safety Report 4986134-1 (Version None)
Quarter: 2006Q2

REPORT INFORMATION
  Report Type: 
  Country: None (occurrence: None)
  Receive Date: 20060428
  Receipt Date: 20060424
  Transmission Date: 20061013
  Serious: Yes (Death, Hospitalization)
  Sender: FDA-Public Use
  Company Number: PL-MERCK-0604POL00006

PATIENT
  Age: 79 Year
  Sex: Male

DRUGS (1)
  1. VIOXX [Suspect]
     Route: 065
     Dates: start: 20010101, end: 20040101

REACTIONS (4)
  - CARDIAC DISORDER [None]
  - DEATH [None]
  - NERVOUS SYSTEM DISORDER [None]
  - WEIGHT DECREASED [None]
